FAERS Safety Report 7269383-1 (Version None)
Quarter: 2011Q1

REPORT INFORMATION
  Report Type: 
  Country: None (occurrence: None)
  Receive Date: 20110125
  Receipt Date: 20110112
  Transmission Date: 20110831
  Serious: Yes (Other)
  Sender: FDA-Public Use
  Company Number: 1000018219

PATIENT
  Age: 78 Year
  Sex: Female
  Weight: 70 kg

DRUGS (8)
  1. MEMANTINE HYDROCHLORIDE [Suspect]
     Indication: DEMENTIA ALZHEIMER'S TYPE
     Dosage: 20 MG (20 MG, 1 IN 1 D), ORAL
     Route: 048
     Dates: start: 20100922, end: 20101210
  2. CANDESARTAN CILEXETIL [Concomitant]
  3. LACTULOSE (LACTULOSE) (LACTULOSE) [Concomitant]
  4. VITAMIN B 12 (CYANOCOBALAMIN) (CYANOCOBALAMIN) [Concomitant]
  5. SALBUTAMOL (SALBUTAMOL) (SALMETEROL) [Concomitant]
  6. CLENIL MODULITE (BECLOMETASONE DIPROPIONATE) (BECLOMETASONE DIPROPIONA [Concomitant]
  7. FUROSEMIDE [Concomitant]
  8. SIMVASTATIN [Concomitant]

REACTIONS (3)
  - LIVER FUNCTION TEST ABNORMAL [None]
  - RENAL FUNCTION TEST ABNORMAL [None]
  - ANGER [None]
